FAERS Safety Report 9349942 (Version 1)
Quarter: 2013Q2

REPORT INFORMATION
  Report Type: Spontaneous
  Country: FR (occurrence: FR)
  Receive Date: 20130614
  Receipt Date: 20130614
  Transmission Date: 20140414
  Serious: Yes (Congenital Anomaly)
  Sender: FDA-Public Use
  Company Number: PHHY2013FR058148

PATIENT
  Sex: Male

DRUGS (4)
  1. TEGRETOL LP [Suspect]
     Indication: EPILEPSY
     Dosage: 400 MG
     Route: 064
     Dates: start: 19950409
  2. RIVOTRIL [Suspect]
     Indication: EPILEPSY
     Dosage: UNK
     Route: 064
     Dates: start: 19950409
  3. ORTENAL [Suspect]
     Indication: EPILEPSY
     Dosage: 150 UKN, UNK
     Route: 064
     Dates: start: 19950409
  4. DEPAKINE [Suspect]
     Indication: EPILEPSY
     Dosage: 400 UKN, UNK
     Route: 064
     Dates: start: 19950409

REACTIONS (2)
  - Autism [Unknown]
  - Cognitive disorder [Unknown]
